FAERS Safety Report 15580748 (Version 1)
Quarter: 2018Q4

REPORT INFORMATION
  Report Type: Spontaneous
  Country: US (occurrence: US)
  Receive Date: 20181030
  Receipt Date: 20181030
  Transmission Date: 20190205
  Serious: Yes (Death, Hospitalization)
  Sender: FDA-Public Use
  Company Number: None

PATIENT
  Sex: Male

DRUGS (11)
  1. VITAMIN D3 [Concomitant]
     Active Substance: CHOLECALCIFEROL
  2. ITRACONAZOLE. [Concomitant]
     Active Substance: ITRACONAZOLE
  3. PREDNISONE. [Concomitant]
     Active Substance: PREDNISONE
  4. VALGANOCICLOV [Concomitant]
  5. SMZ/TMP [Concomitant]
     Active Substance: SULFAMETHOXAZOLE\TRIMETHOPRIM
  6. OYSCO [Concomitant]
  7. MIRTAZAPINE. [Concomitant]
     Active Substance: MIRTAZAPINE
  8. PREVIDENT [Concomitant]
     Active Substance: SODIUM FLUORIDE
  9. NYSTATIN. [Concomitant]
     Active Substance: NYSTATIN
  10. BUDESONIDE. [Concomitant]
     Active Substance: BUDESONIDE
  11. ZENPEP [Suspect]
     Active Substance: PANCRELIPASE AMYLASE\PANCRELIPASE LIPASE\PANCRELIPASE PROTEASE
     Indication: CYSTIC FIBROSIS
     Route: 048
     Dates: start: 20131017

REACTIONS (2)
  - Product dispensing error [None]
  - Treatment noncompliance [None]
